FAERS Safety Report 13014024 (Version 1)
Quarter: 2016Q4

REPORT INFORMATION
  Report Type: Spontaneous
  Country: TH (occurrence: TH)
  Receive Date: 20161209
  Receipt Date: 20161209
  Transmission Date: 20170207
  Serious: Yes (Death, Hospitalization)
  Sender: FDA-Public Use
  Company Number: TH-FRESENIUS KABI-FK201609673

PATIENT
  Age: 65 Year
  Sex: Female

DRUGS (1)
  1. INTAXEL (PACLITAXEL) [Suspect]
     Active Substance: PACLITAXEL
     Indication: BREAST CANCER
     Route: 042
     Dates: start: 20160912, end: 20160912

REACTIONS (1)
  - Hypersensitivity [Fatal]

NARRATIVE: CASE EVENT DATE: 20160912
